FAERS Safety Report 8532588-3 (Version None)
Quarter: 2012Q3

REPORT INFORMATION
  Report Type: 
  Country: None (occurrence: None)
  Receive Date: 20120724
  Receipt Date: 20120719
  Transmission Date: 20120928
  Serious: No
  Sender: FDA-Public Use
  Company Number: US-PFIZER INC-2012124895

PATIENT
  Sex: Female
  Weight: 12.698 kg

DRUGS (1)
  1. CHILDREN'S ADVIL [Suspect]
     Dosage: 1100 UNK, ONCE
     Route: 048
     Dates: start: 20120522, end: 20120522

REACTIONS (3)
  - PRODUCT CONTAINER ISSUE [None]
  - ABDOMINAL DISCOMFORT [None]
  - ACCIDENTAL DRUG INTAKE BY CHILD [None]
